FAERS Safety Report 4267967-6 (Version None)
Quarter: 2004Q1

REPORT INFORMATION
  Report Type: 
  Country: None (occurrence: None)
  Receive Date: 20040109
  Receipt Date: 20031216
  Transmission Date: 20041129
  Serious: Yes (Hospitalization)
  Sender: FDA-Public Use
  Company Number: WAES 0312USA02161

PATIENT
  Age: 93 Year
  Sex: Female
  Weight: 40 kg

DRUGS (6)
  1. AZULENE SULFONATE SODIUM [Concomitant]
     Dates: end: 20031215
  2. LAFUTIDINE [Suspect]
     Route: 048
     Dates: start: 20031212, end: 20031215
  3. COZAAR [Suspect]
     Route: 048
     Dates: end: 20031215
  4. MOSAPRIDE CITRATE [Suspect]
     Route: 048
     Dates: end: 20031215
  5. NICERGOLINE [Suspect]
     Indication: CEREBRAL CIRCULATORY FAILURE
     Route: 048
     Dates: end: 20031215
  6. VOGLIBOSE [Suspect]
     Route: 048
     Dates: end: 20031215

REACTIONS (3)
  - FEMORAL NECK FRACTURE [None]
  - GASTRITIS [None]
  - THROMBOCYTOPENIA [None]
